FAERS Safety Report 5112460-1 (Version None)
Quarter: 2006Q3

REPORT INFORMATION
  Report Type: 
  Country: None (occurrence: None)
  Receive Date: 20060922
  Receipt Date: 20060912
  Transmission Date: 20061208
  Serious: Yes (Other)
  Sender: FDA-Public Use
  Company Number: IT-AMGEN-UK193194

PATIENT
  Age: 66 Year
  Sex: Female

DRUGS (1)
  1. KINERET [Suspect]
     Indication: RHEUMATOID ARTHRITIS
     Route: 058
     Dates: start: 20031210

REACTIONS (7)
  - CARDIAC FIBRILLATION [None]
  - CARDIAC HYPERTROPHY [None]
  - CHEST PAIN [None]
  - DYSPNOEA EXERTIONAL [None]
  - EXTRANODAL MARGINAL ZONE B-CELL LYMPHOMA (MALT TYPE) [None]
  - NON-HODGKIN'S LYMPHOMA [None]
  - VENTRICULAR TACHYCARDIA [None]
